FAERS Safety Report 5383758-7 (Version None)
Quarter: 2007Q3

REPORT INFORMATION
  Report Type: 
  Country: None (occurrence: None)
  Receive Date: 20070711
  Receipt Date: 20070702
  Transmission Date: 20080115
  Serious: Yes (Hospitalization)
  Sender: FDA-Public Use
  Company Number: PHNR2007AU01317

PATIENT
  Age: 7 Year
  Sex: Male

DRUGS (1)
  1. TEGRETOL [Suspect]
     Indication: CONVULSION
     Dosage: 200 MG, UNK
     Dates: start: 20070509, end: 20070525

REACTIONS (17)
  - BLADDER DILATATION [None]
  - BLISTER [None]
  - CONJUNCTIVITIS [None]
  - HYPOAESTHESIA [None]
  - LETHARGY [None]
  - LIP PAIN [None]
  - LIP SWELLING [None]
  - MUSCLE SPASMS [None]
  - OCULAR HYPERAEMIA [None]
  - RASH [None]
  - SCAR [None]
  - SKIN BURNING SENSATION [None]
  - STEVENS-JOHNSON SYNDROME [None]
  - SWELLING FACE [None]
  - TONSILLITIS [None]
  - URETHRAL OBSTRUCTION [None]
  - URINARY RETENTION [None]
